FAERS Safety Report 24414766 (Version 1)
Quarter: 2024Q4

REPORT INFORMATION
  Report Type: Spontaneous
  Country: CA (occurrence: CA)
  Receive Date: 20241009
  Receipt Date: 20241009
  Transmission Date: 20250115
  Serious: Yes (Other)
  Sender: UCB
  Company Number: CA-UCBSA-2024051179

PATIENT
  Age: 67 Year
  Sex: Female

DRUGS (1)
  1. LACOSAMIDE [Suspect]
     Active Substance: LACOSAMIDE
     Indication: Seizure
     Dosage: 1 DOSAGE FORM
     Route: 040

REACTIONS (3)
  - Agitation [Unknown]
  - Hypoxia [Unknown]
  - Vomiting [Unknown]
